FAERS Safety Report 8711051 (Version 2)
Quarter: 2012Q4

REPORT INFORMATION
  Report Type: 
  Country: US (occurrence: US)
  Receive Date: 20120807
  Receipt Date: 20121025
  Transmission Date: 20130627
  Serious: No
  Sender: FDA-Public Use
  Company Number: US-009507513-1207USA009282

PATIENT
  Sex: Male

DRUGS (4)
  1. VICTRELIS [Suspect]
     Dosage: 800 mg, tid (every 7-9 hours)
     Route: 048
  2. ASCORBIC ACID [Concomitant]
  3. VITAMIN E [Concomitant]
  4. OMEGA-3 MARINE TRIGLYCERIDES [Concomitant]

REACTIONS (1)
  - Hepatitis C RNA increased [Unknown]
